FAERS Safety Report 7047320-2 (Version None)
Quarter: 2010Q4

REPORT INFORMATION
  Report Type: 
  Country: None (occurrence: None)
  Receive Date: 20101015
  Receipt Date: 20101005
  Transmission Date: 20110411
  Serious: Yes (Other)
  Sender: FDA-Public Use
  Company Number: PHHY2010JP58791

PATIENT
  Sex: Female

DRUGS (1)
  1. ZOMETA [Suspect]
     Indication: BONE LESION
     Route: 041

REACTIONS (2)
  - LOOSE TOOTH [None]
  - OSTEONECROSIS OF JAW [None]
